FAERS Safety Report 24613934 (Version 1)
Quarter: 2024Q4

REPORT INFORMATION
  Report Type: Spontaneous
  Country: US (occurrence: None)
  Receive Date: 20241113
  Receipt Date: 20241113
  Transmission Date: 20250115
  Serious: Yes (Other)
  Sender: Public
  Company Number: None

PATIENT
  Age: 64 Year
  Sex: Male
  Weight: 109 kg

DRUGS (7)
  1. AMIODARONE [Suspect]
     Active Substance: AMIODARONE
     Indication: Atrial flutter
     Dosage: 150 MG ONCE INTRVENOUS BOLUS?
     Route: 040
     Dates: start: 20241109, end: 20241110
  2. amoxicillin 500mg PO BID x 7 days [Concomitant]
     Dates: start: 20241108
  3. Odefsy 1 tablet PO daily (home med) [Concomitant]
  4. atorvastatin 10mg PO qhs (home med) [Concomitant]
  5. Bactrim SS 1 tab PO daily x30 days ppx [Concomitant]
     Dates: start: 20241107
  6. tamsulosin 0.4 mg PO qhs (home med) [Concomitant]
  7. olanzapine 10 mg PO qhs (home med) [Concomitant]

REACTIONS (2)
  - Aspartate aminotransferase increased [None]
  - Alanine aminotransferase increased [None]

NARRATIVE: CASE EVENT DATE: 20241111
